FAERS Safety Report 25165436 (Version 2)
Quarter: 2025Q2

REPORT INFORMATION
  Report Type: Spontaneous
  Country: DE (occurrence: DE)
  Receive Date: 20250407
  Receipt Date: 20250421
  Transmission Date: 20250717
  Serious: No
  Sender: NOVARTIS
  Company Number: DE-002147023-NVSC2025DE056555

PATIENT
  Sex: Male

DRUGS (2)
  1. COSENTYX [Suspect]
     Active Substance: SECUKINUMAB
     Indication: Psoriasis
     Route: 065
  2. COSENTYX [Suspect]
     Active Substance: SECUKINUMAB
     Indication: Psoriatic arthropathy

REACTIONS (1)
  - Enteritis [Unknown]
